FAERS Safety Report 23276498 (Version 1)
Quarter: 2023Q4

REPORT INFORMATION
  Report Type: Spontaneous
  Country: CO (occurrence: CO)
  Receive Date: 20231208
  Receipt Date: 20231208
  Transmission Date: 20240109
  Serious: Yes (Hospitalization)
  Sender: FDA-Public Use
  Company Number: CO-MYLANLABS-2023M1130081

PATIENT
  Age: 28 Year
  Sex: Male

DRUGS (4)
  1. ATAZANAVIR\RITONAVIR [Interacting]
     Active Substance: ATAZANAVIR\RITONAVIR
     Indication: HIV infection
     Dosage: UNK
     Route: 065
  2. ATAZANAVIR\RITONAVIR [Interacting]
     Active Substance: ATAZANAVIR\RITONAVIR
     Dosage: UNK, LATER CONTINUED
     Route: 065
  3. CAFFEINE\ERGOTAMINE [Interacting]
     Active Substance: CAFFEINE\ERGOTAMINE
     Indication: Migraine
     Dosage: UNK, Q8H
     Route: 065
  4. ABACAVIR\LAMIVUDINE [Concomitant]
     Active Substance: ABACAVIR\LAMIVUDINE
     Indication: HIV infection
     Dosage: UNK
     Route: 065

REACTIONS (2)
  - Drug interaction [Recovered/Resolved]
  - Ergot poisoning [Recovered/Resolved]
